FAERS Safety Report 4323752-8 (Version None)
Quarter: 2004Q1

REPORT INFORMATION
  Report Type: 
  Country: None (occurrence: None)
  Receive Date: 20040323
  Receipt Date: 20040316
  Transmission Date: 20041129
  Serious: Yes (Hospitalization)
  Sender: FDA-Public Use
  Company Number: CA-JNJFOC-20040204255

PATIENT
  Age: 7 Year
  Sex: Female
  Weight: 23.4 kg

DRUGS (4)
  1. CONCERTA [Suspect]
     Indication: ATTENTION DEFICIT/HYPERACTIVITY DISORDER
     Dosage: 54 MG, 1 IN 1 DAY, ORAL
     Route: 048
     Dates: start: 20030815, end: 20040207
  2. CELEXA [Suspect]
     Indication: SLEEP DISORDER
     Dosage: 10 MG, 3 IN 1 DAY, ORAL
     Route: 048
     Dates: start: 20030101, end: 20040206
  3. RISPERIDONE [Concomitant]
  4. DITROPAN IR (OXYBUTYNIN HYDROCHLORIDE) [Concomitant]

REACTIONS (11)
  - ABNORMAL BEHAVIOUR [None]
  - ANGER [None]
  - BIPOLAR DISORDER [None]
  - CRYING [None]
  - DECREASED APPETITE [None]
  - DRUG INTERACTION [None]
  - HALLUCINATION, AUDITORY [None]
  - HOMICIDAL IDEATION [None]
  - MOOD SWINGS [None]
  - NAUSEA [None]
  - VOMITING [None]
